FAERS Safety Report 10637379 (Version 2)
Quarter: 2015Q1

REPORT INFORMATION
  Report Type: Spontaneous
  Country: JP (occurrence: None)
  Receive Date: 20141204
  Receipt Date: 20150213
  Transmission Date: 20150720
  Serious: Yes (Other)
  Sender: FDA-Public Use
  Company Number: ABR_01873_2014

PATIENT
  Age: 76 Year
  Sex: Male

DRUGS (1)
  1. GLIADEL [Suspect]
     Active Substance: CARMUSTINE
     Indication: GLIOMA
     Dosage: INTRACEREBRAL
     Dates: start: 20141119

REACTIONS (3)
  - Pneumocephalus [None]
  - Condition aggravated [None]
  - Brain oedema [None]

NARRATIVE: CASE EVENT DATE: 20141125
